FAERS Safety Report 7574500-X (Version None)
Quarter: 2011Q2

REPORT INFORMATION
  Report Type: 
  Country: None (occurrence: None)
  Receive Date: 20110627
  Receipt Date: 20110621
  Transmission Date: 20111010
  Serious: Yes (Death)
  Sender: FDA-Public Use
  Company Number: US-PFIZER INC-2008154136

PATIENT
  Age: 46 Year
  Sex: Female

DRUGS (6)
  1. METHYLPHENIDATE [Suspect]
     Dosage: UNK
     Dates: end: 20070101
  2. BUPROPION HCL [Suspect]
     Dosage: UNK
     Dates: end: 20070101
  3. CHLORPHENIRAMINE MALEATE [Suspect]
     Dosage: UNK
     Dates: end: 20070101
  4. TRAZODONE HCL [Suspect]
     Dosage: UNK
     Dates: end: 20070101
  5. METHADONE HCL [Suspect]
     Dosage: UNK
     Dates: end: 20070101
  6. VENLAFAXINE HCL [Suspect]
     Dosage: UNK
     Dates: end: 20070101

REACTIONS (3)
  - RESPIRATORY ARREST [None]
  - CARDIAC ARREST [None]
  - COMPLETED SUICIDE [None]
